FAERS Safety Report 17824829 (Version 2)
Quarter: 2020Q2

REPORT INFORMATION
  Report Type: Spontaneous
  Country: US (occurrence: US)
  Receive Date: 20200526
  Receipt Date: 20200528
  Transmission Date: 20200714
  Serious: Yes (Life-Threatening, Hospitalization, Other)
  Sender: FDA-Public Use
  Company Number: US-PFIZER INC-2020205569

PATIENT
  Age: 48 Year
  Sex: Female

DRUGS (2)
  1. METHOTREXATE SODIUM. [Suspect]
     Active Substance: METHOTREXATE SODIUM
     Indication: PSORIATIC ARTHROPATHY
     Dosage: UNK
  2. INFLIXIMAB [Suspect]
     Active Substance: INFLIXIMAB
     Indication: PSORIATIC ARTHROPATHY
     Dosage: UNK

REACTIONS (6)
  - Jaundice cholestatic [Recovered/Resolved]
  - Granulomatous liver disease [Recovered/Resolved]
  - Histoplasmosis disseminated [Recovered/Resolved]
  - Cardiac tamponade [Unknown]
  - Pleural effusion [Unknown]
  - Hepatitis cholestatic [Recovered/Resolved]
